FAERS Safety Report 8309143-3 (Version None)
Quarter: 2012Q2

REPORT INFORMATION
  Report Type: 
  Country: None (occurrence: None)
  Receive Date: 20120424
  Receipt Date: 20120417
  Transmission Date: 20120825
  Serious: Yes (Other)
  Sender: FDA-Public Use
  Company Number: US-ABBOTT-12P-163-0906294-00

PATIENT
  Sex: Male
  Weight: 94.886 kg

DRUGS (4)
  1. TESTIM [Concomitant]
     Indication: PRODUCT USED FOR UNKNOWN INDICATION
     Dosage: GEL IN MORNING APPLIED TO UPPER ARMS OR SHOULDERS
  2. NIASPAN [Suspect]
     Indication: BLOOD CHOLESTEROL INCREASED
     Dosage: AT BEDTIME
     Dates: start: 20100101
  3. CRESTOR [Concomitant]
     Indication: PRODUCT USED FOR UNKNOWN INDICATION
     Dosage: AT NIGHTTIME WITH NIASPAN
  4. BENAZEPRIL HYDROCHLORIDE [Concomitant]
     Indication: PRODUCT USED FOR UNKNOWN INDICATION
     Dosage: DAILY IN THE MORNING

REACTIONS (8)
  - PRURITUS [None]
  - PROCEDURAL PAIN [None]
  - SLEEP APNOEA SYNDROME [None]
  - SINUSITIS [None]
  - PARAESTHESIA [None]
  - SINUS OPERATION [None]
  - FEELING HOT [None]
  - TONSILLECTOMY [None]
